FAERS Safety Report 14476569 (Version 3)
Quarter: 2019Q4

REPORT INFORMATION
  Report Type: Spontaneous
  Country: US (occurrence: US)
  Receive Date: 20180201
  Receipt Date: 20191213
  Transmission Date: 20200122
  Serious: No
  Sender: FDA-Public Use
  Company Number: US-SA-2017SA229864

PATIENT
  Age: 71 Year
  Sex: Male

DRUGS (1)
  1. PRALUENT [Suspect]
     Active Substance: ALIROCUMAB
     Indication: BLOOD CHOLESTEROL INCREASED
     Dosage: 75 MG,QOW
     Route: 058
     Dates: start: 201705, end: 20191205

REACTIONS (4)
  - Weight increased [Unknown]
  - Injection site pruritus [Recovered/Resolved]
  - Increased appetite [Unknown]
  - Product dose omission [Unknown]

NARRATIVE: CASE EVENT DATE: 201711
